FAERS Safety Report 7383811-2 (Version None)
Quarter: 2011Q1

REPORT INFORMATION
  Report Type: 
  Country: None (occurrence: None)
  Receive Date: 20110330
  Receipt Date: 20110318
  Transmission Date: 20110831
  Serious: Yes (Other)
  Sender: FDA-Public Use
  Company Number: NL-MEDIMMUNE-MEDI-0012945

PATIENT
  Sex: Male
  Weight: 5.76 kg

DRUGS (3)
  1. DIURETICS [Concomitant]
  2. SYNAGIS [Suspect]
     Route: 030
     Dates: start: 20110316, end: 20110316
  3. SYNAGIS [Suspect]
     Route: 030
     Dates: start: 20101115, end: 20110217

REACTIONS (3)
  - NASOPHARYNGITIS [None]
  - NASAL CONGESTION [None]
  - OLIGODIPSIA [None]
